FAERS Safety Report 20228116 (Version 1)
Quarter: 2021Q4

REPORT INFORMATION
  Report Type: Spontaneous
  Country: FR (occurrence: FR)
  Receive Date: 20211224
  Receipt Date: 20211224
  Transmission Date: 20220303
  Serious: Yes (Other)
  Sender: FDA-Public Use
  Company Number: None

PATIENT
  Age: 17 Year
  Sex: Female

DRUGS (1)
  1. NICOTINE [Suspect]
     Active Substance: NICOTINE
     Indication: Product used for unknown indication
     Dosage: 1 SACHET OF WHITE POWDER MORE THAN 13MG OF NICOTINE IN ONE TAKE
     Route: 048
     Dates: start: 20211021, end: 20211021

REACTIONS (5)
  - Tobacco abuse [Recovering/Resolving]
  - Vomiting [Recovering/Resolving]
  - Poisoning [Recovering/Resolving]
  - Headache [Recovering/Resolving]
  - Chills [Recovering/Resolving]

NARRATIVE: CASE EVENT DATE: 20211021
